FAERS Safety Report 11029452 (Version 2)
Quarter: 2015Q2

REPORT INFORMATION
  Report Type: Spontaneous
  Country: DE (occurrence: DE)
  Receive Date: 20150415
  Receipt Date: 20150501
  Transmission Date: 20150821
  Serious: Yes (Hospitalization, Other)
  Sender: FDA-Public Use
  Company Number: DE-SUN PHARMACEUTICAL INDUSTRIES LTD-2015RR-95175

PATIENT
  Age: 20 Year
  Sex: Male

DRUGS (3)
  1. IBUPROFEN. [Suspect]
     Active Substance: IBUPROFEN
     Indication: POISONING DELIBERATE
     Dosage: HIGH DOSES
     Route: 048
     Dates: start: 201210
  2. ASPIRIN. [Suspect]
     Active Substance: ASPIRIN
     Indication: POISONING DELIBERATE
     Dosage: HIGH DOSES
     Route: 048
     Dates: start: 201210
  3. PREGABALIN. [Suspect]
     Active Substance: PREGABALIN
     Indication: SEIZURE
     Dosage: 150 MG, DAILY
     Route: 048
     Dates: start: 201210

REACTIONS (3)
  - Suicide attempt [Unknown]
  - Depression [Recovered/Resolved]
  - Intentional overdose [Unknown]
